FAERS Safety Report 23478938 (Version 1)
Quarter: 2024Q1

REPORT INFORMATION
  Report Type: Report from Study
  Country: TH (occurrence: TH)
  Receive Date: 20240205
  Receipt Date: 20240205
  Transmission Date: 20240410
  Serious: No
  Sender: FDA-Public Use
  Company Number: TH-IPSEN Group, Research and Development-2023-25169

PATIENT
  Age: 61 Year
  Sex: Male

DRUGS (2)
  1. CABOMETYX [Suspect]
     Active Substance: CABOZANTINIB S-MALATE
     Indication: Hepatocellular carcinoma
     Dosage: 40 MG
     Route: 048
     Dates: start: 20230921
  2. CABOMETYX [Suspect]
     Active Substance: CABOZANTINIB S-MALATE
     Dosage: 40 MG TWO CONSECUTIVE DAYS WITH ONE DAY OFF
     Route: 048
     Dates: start: 20231031, end: 20240112

REACTIONS (6)
  - Mouth ulceration [Recovered/Resolved]
  - Skin exfoliation [Recovered/Resolved]
  - Decreased appetite [Recovered/Resolved]
  - Drug intolerance [Unknown]
  - Off label use [Unknown]
  - Off label use [Unknown]

NARRATIVE: CASE EVENT DATE: 20230921
